FAERS Safety Report 6390392-9 (Version None)
Quarter: 2009Q4

REPORT INFORMATION
  Report Type: 
  Country: None (occurrence: None)
  Receive Date: 20091006
  Receipt Date: 20091001
  Transmission Date: 20100525
  Serious: Yes (Hospitalization)
  Sender: FDA-Public Use
  Company Number: US-MERCK-0909USA02384

PATIENT
  Age: 57 Year
  Sex: Male

DRUGS (9)
  1. JANUVIA [Suspect]
     Indication: DIABETES MELLITUS
     Route: 048
     Dates: end: 20090916
  2. METFORMIN [Concomitant]
     Route: 065
  3. CARVEDILOL [Concomitant]
     Route: 065
  4. GLIMEPIRIDE [Concomitant]
     Route: 065
  5. LIPITOR [Concomitant]
     Route: 065
  6. LOVAZA [Concomitant]
     Route: 065
  7. PLAVIX [Concomitant]
     Route: 065
  8. TRICOR [Concomitant]
     Route: 065
  9. LISINOPRIL [Concomitant]
     Route: 048

REACTIONS (4)
  - BLOOD GLUCOSE INCREASED [None]
  - CARDIAC DISORDER [None]
  - CHEST PAIN [None]
  - DRUG INEFFECTIVE [None]
